FAERS Safety Report 16483068 (Version 1)
Quarter: 2019Q2

REPORT INFORMATION
  Report Type: Spontaneous
  Country: US (occurrence: US)
  Receive Date: 20190515
  Receipt Date: 20190515
  Transmission Date: 20190711
  Serious: No
  Sender: FDA-Public Use
  Company Number: None

PATIENT
  Age: 46 Year
  Sex: Male
  Weight: 105 kg

DRUGS (4)
  1. G-CSF (FILGRASTIM AMGEN) [Suspect]
     Active Substance: FILGRASTIM
     Dates: end: 20180503
  2. CISPLATIN. [Suspect]
     Active Substance: CISPLATIN
     Dates: end: 20190502
  3. IFOSFAMIDE. [Suspect]
     Active Substance: IFOSFAMIDE
     Dates: end: 20190503
  4. TAXOL [Suspect]
     Active Substance: PACLITAXEL
     Dates: end: 20190429

REACTIONS (6)
  - Prescribed overdose [None]
  - Neutropenia [None]
  - Inappropriate schedule of product administration [None]
  - Product prescribing error [None]
  - Thrombocytopenia [None]
  - Febrile neutropenia [None]

NARRATIVE: CASE EVENT DATE: 20190503
